FAERS Safety Report 20486306 (Version 2)
Quarter: 2022Q2

REPORT INFORMATION
  Report Type: Spontaneous
  Country: JP (occurrence: JP)
  Receive Date: 20220217
  Receipt Date: 20220516
  Transmission Date: 20220721
  Serious: No
  Sender: FDA-Public Use
  Company Number: JP-GLAXOSMITHKLINE-JP2022JPN026100

PATIENT

DRUGS (3)
  1. SOTROVIMAB [Suspect]
     Active Substance: SOTROVIMAB
     Indication: COVID-19
     Dosage: 500 MG/DAY
     Route: 041
     Dates: start: 20220208, end: 20220208
  2. METOCLOPRAMIDE [Suspect]
     Active Substance: METOCLOPRAMIDE
     Dosage: 15 MG/DAY
     Route: 048
     Dates: start: 20211217
  3. CALONAL [Suspect]
     Active Substance: ACETAMINOPHEN
     Dosage: 400 MG/DOSE, AS NEEDED
     Route: 048
     Dates: start: 20211217

REACTIONS (1)
  - Exposure during pregnancy [Unknown]
